FAERS Safety Report 16262301 (Version 1)
Quarter: 2019Q2

REPORT INFORMATION
  Report Type: Spontaneous
  Country: US (occurrence: US)
  Receive Date: 20190501
  Receipt Date: 20190501
  Transmission Date: 20190711
  Serious: No
  Sender: FDA-Public Use
  Company Number: US-BAUSCH-BL-2019-011607

PATIENT
  Sex: Female

DRUGS (1)
  1. DORZOLAMIDE HYDROCHLORIDE AND TIMOLOL MALEATE OPHTHALMIC SOLN 2%/0.5% [Suspect]
     Active Substance: DORZOLAMIDE HYDROCHLORIDE\TIMOLOL MALEATE
     Indication: PRODUCT USED FOR UNKNOWN INDICATION
     Dosage: DORZOLAMIDE HYDROCHLORIDE 2 PERCENT?TIMOLOL MALEATE 0.5 PERCENT
     Route: 065

REACTIONS (3)
  - Ocular hyperaemia [Unknown]
  - Lacrimation increased [Unknown]
  - Product quality issue [Unknown]
